FAERS Safety Report 8203074 (Version 5)
Quarter: 2013Q4

REPORT INFORMATION
  Report Type: Spontaneous
  Country: US (occurrence: US)
  Receive Date: 20111027
  Receipt Date: 20131221
  Transmission Date: 20140711
  Serious: Yes (Other)
  Sender: FDA-Public Use
  Company Number: US-ASTRAZENECA-2010SE46369

PATIENT
  Age: 59 Year
  Sex: Female

DRUGS (4)
  1. NEXIUM [Suspect]
     Route: 048
  2. NEXIUM [Suspect]
     Dosage: TWO TIMES A DAY
     Route: 048
  3. NEXIUM [Suspect]
     Route: 048
     Dates: end: 20131211
  4. PREVACID [Concomitant]
     Dosage: TWICE A DAY

REACTIONS (8)
  - Leukaemia [Unknown]
  - Oesophageal pain [Unknown]
  - Oesophageal disorder [Unknown]
  - Gastrooesophageal reflux disease [Unknown]
  - Abdominal pain upper [Unknown]
  - Oesophagitis [Unknown]
  - Pain [Unknown]
  - Drug dose omission [Unknown]
